FAERS Safety Report 7620127-0 (Version None)
Quarter: 2011Q3

REPORT INFORMATION
  Report Type: 
  Country: None (occurrence: None)
  Receive Date: 20110719
  Receipt Date: 20110708
  Transmission Date: 20111222
  Serious: Yes (Other)
  Sender: FDA-Public Use
  Company Number: DE-JNJFOC-20110704074

PATIENT
  Sex: Female

DRUGS (3)
  1. IBUPROFEN [Suspect]
     Indication: TOOTHACHE
     Route: 048
     Dates: start: 20110629
  2. IBUPROFEN [Suspect]
     Indication: HEADACHE
     Route: 048
     Dates: start: 20110629
  3. IBUPROFEN [Suspect]
     Indication: MALAISE
     Route: 048
     Dates: start: 20110629

REACTIONS (4)
  - OVERDOSE [None]
  - LACERATION [None]
  - VISUAL IMPAIRMENT [None]
  - VERTIGO [None]
